FAERS Safety Report 11146760 (Version 2)
Quarter: 2015Q4

REPORT INFORMATION
  Report Type: Spontaneous
  Country: CH (occurrence: CH)
  Receive Date: 20150528
  Receipt Date: 20151201
  Transmission Date: 20160304
  Serious: Yes (Other)
  Sender: FDA-Public Use
  Company Number: CH-ABBVIE-15P-151-1399366-00

PATIENT

DRUGS (1)
  1. KLACID OD [Suspect]
     Active Substance: CLARITHROMYCIN
     Indication: MATERNAL EXPOSURE TIMING UNSPECIFIED
     Route: 064

REACTIONS (1)
  - Foetal exposure during pregnancy [Unknown]

NARRATIVE: CASE EVENT DATE: 201503
